FAERS Safety Report 5516775-4 (Version None)
Quarter: 2007Q4

REPORT INFORMATION
  Report Type: 
  Country: None (occurrence: None)
  Receive Date: 20071114
  Receipt Date: 20070516
  Transmission Date: 20080405
  Serious: No
  Sender: FDA-Public Use
  Company Number: A0651355A

PATIENT
  Sex: Male

DRUGS (1)
  1. COMMIT [Suspect]
     Indication: DRUG USE FOR UNKNOWN INDICATION

REACTIONS (3)
  - FEELING ABNORMAL [None]
  - PARAESTHESIA [None]
  - PSYCHOMOTOR HYPERACTIVITY [None]
